FAERS Safety Report 4718488-5 (Version None)
Quarter: 2005Q3

REPORT INFORMATION
  Report Type: 
  Country: None (occurrence: None)
  Receive Date: 20050719
  Receipt Date: 20050503
  Transmission Date: 20060218
  Serious: Yes (Hospitalization)
  Sender: FDA-Public Use
  Company Number: 2005069203

PATIENT
  Sex: Female

DRUGS (3)
  1. CELEBREX [Suspect]
     Indication: ARTHRITIS
     Dosage: ORAL
     Route: 048
  2. FELDENE [Suspect]
     Indication: ARTHRITIS
     Dosage: ORAL
     Route: 048
  3. NAPROXEN [Suspect]
     Indication: ARTHRITIS
     Dosage: ORAL
     Route: 048

REACTIONS (3)
  - ABDOMINAL PAIN [None]
  - GASTROOESOPHAGEAL REFLUX DISEASE [None]
  - ULCER HAEMORRHAGE [None]
